FAERS Safety Report 7935729 (Version 2)
Quarter: 2014Q2

REPORT INFORMATION
  Report Type: Report from Study
  Country: US (occurrence: US)
  Receive Date: 20110509
  Receipt Date: 20140623
  Transmission Date: 20141212
  Serious: Yes (Other)
  Sender: FDA-Public Use
  Company Number: US-ALEXION-A201000556

PATIENT
  Sex: Male

DRUGS (3)
  1. SOLIRIS [Suspect]
     Indication: PAROXYSMAL NOCTURNAL HAEMOGLOBINURIA
     Dosage: 600 MG, QW
     Route: 042
     Dates: start: 200910, end: 200910
  2. SOLIRIS [Suspect]
     Dosage: 900 MG, Q2W
     Route: 042
     Dates: start: 20091111
  3. COUMADIN                           /00014802/ [Concomitant]
     Dosage: UNK

REACTIONS (5)
  - Prostate cancer [Unknown]
  - Lower gastrointestinal haemorrhage [Unknown]
  - Haemorrhoids [Not Recovered/Not Resolved]
  - Haemorrhoidal haemorrhage [Not Recovered/Not Resolved]
  - Thrombocytopenia [Not Recovered/Not Resolved]
